FAERS Safety Report 17880130 (Version 1)
Quarter: 2020Q2

REPORT INFORMATION
  Report Type: Spontaneous
  Country: US (occurrence: US)
  Receive Date: 20200610
  Receipt Date: 20200610
  Transmission Date: 20200714
  Serious: Yes (Disabling)
  Sender: FDA-Public Use
  Company Number: None

PATIENT
  Age: 58 Year
  Sex: Female
  Weight: 54.9 kg

DRUGS (8)
  1. LISINOPRIL. [Concomitant]
     Active Substance: LISINOPRIL
  2. DULOXETINE 20 MG [Suspect]
     Active Substance: DULOXETINE
     Indication: ANXIETY
     Dosage: ?          QUANTITY:6 ML;?
     Route: 048
     Dates: start: 20150405, end: 20190905
  3. ADVIL [Concomitant]
     Active Substance: IBUPROFEN
  4. CLONAZEPAM. [Concomitant]
     Active Substance: CLONAZEPAM
  5. OMEGA 3 [Concomitant]
     Active Substance: OMEGA-3 FATTY ACIDS
  6. GABAPENTIN. [Concomitant]
     Active Substance: GABAPENTIN
  7. LAMOTRIGINE EXTENDED RELEASE [Concomitant]
     Active Substance: LAMOTRIGINE
  8. VITAMIN D [Concomitant]
     Active Substance: VITAMIN D NOS

REACTIONS (20)
  - Tremor [None]
  - Speech disorder [None]
  - Muscular weakness [None]
  - Withdrawal syndrome [None]
  - Respiratory rate increased [None]
  - Dystonia [None]
  - Balance disorder [None]
  - Fatigue [None]
  - Disturbance in attention [None]
  - Dysgraphia [None]
  - Headache [None]
  - Diplopia [None]
  - Vision blurred [None]
  - Tinnitus [None]
  - Asthenia [None]
  - Gait disturbance [None]
  - Hypotension [None]
  - Anxiety [None]
  - Palpitations [None]
  - Dizziness [None]

NARRATIVE: CASE EVENT DATE: 20190405
